FAERS Safety Report 6170049-X (Version None)
Quarter: 2009Q2

REPORT INFORMATION
  Report Type: 
  Country: None (occurrence: None)
  Receive Date: 20090424
  Receipt Date: 20081229
  Transmission Date: 20091009
  Serious: No
  Sender: FDA-Public Use
  Company Number: ALL1-2008-03639

PATIENT
  Age: 16 Year
  Sex: Male

DRUGS (3)
  1. VYVANSE [Suspect]
     Indication: ATTENTION DEFICIT/HYPERACTIVITY DISORDER
     Dosage: 20 MG, 1X/DAY QD, ORAL; 70 MG,  1X/DAY QD, ORAL; 70 MG, OTHER (EVERY OTHER DAY), ORAL
     Route: 048
     Dates: start: 20081001, end: 20081101
  2. VYVANSE [Suspect]
     Indication: ATTENTION DEFICIT/HYPERACTIVITY DISORDER
     Dosage: 20 MG, 1X/DAY QD, ORAL; 70 MG,  1X/DAY QD, ORAL; 70 MG, OTHER (EVERY OTHER DAY), ORAL
     Route: 048
     Dates: start: 20081101, end: 20081201
  3. VYVANSE [Suspect]
     Indication: ATTENTION DEFICIT/HYPERACTIVITY DISORDER
     Dosage: 20 MG, 1X/DAY QD, ORAL; 70 MG,  1X/DAY QD, ORAL; 70 MG, OTHER (EVERY OTHER DAY), ORAL
     Route: 048
     Dates: start: 20081201

REACTIONS (4)
  - DRY MOUTH [None]
  - HEADACHE [None]
  - OFF LABEL USE [None]
  - TREMOR [None]
